FAERS Safety Report 5148600-8 (Version None)
Quarter: 2006Q4

REPORT INFORMATION
  Report Type: 
  Country: None (occurrence: None)
  Receive Date: 20060918
  Receipt Date: 20060425
  Transmission Date: 20070319
  Serious: Yes (Other)
  Sender: FDA-Public Use
  Company Number: US-JNJFOC-20060302581

PATIENT
  Age: 39 Year
  Sex: Female
  Weight: 68.0396 kg

DRUGS (4)
  1. TOPAMAX [Suspect]
     Indication: EPILEPSY
     Dosage: SEE IMAGE
     Dates: start: 20000101, end: 20060201
  2. TOPAMAX [Suspect]
     Indication: EPILEPSY
     Dosage: SEE IMAGE
     Dates: start: 20060201
  3. CARBATROL [Concomitant]
  4. DEPO (METHYLPREDNISOLONE ACETATE) [Concomitant]

REACTIONS (7)
  - DIZZINESS [None]
  - HYPOAESTHESIA [None]
  - INSOMNIA [None]
  - RESTLESSNESS [None]
  - SOMNOLENCE [None]
  - STARING [None]
  - THERAPEUTIC RESPONSE DECREASED [None]
